FAERS Safety Report 8369172-0 (Version None)
Quarter: 2012Q2

REPORT INFORMATION
  Report Type: 
  Country: None (occurrence: None)
  Receive Date: 20120518
  Receipt Date: 20120507
  Transmission Date: 20120825
  Serious: Yes (Hospitalization, Other)
  Sender: FDA-Public Use
  Company Number: US-SANOFI-AVENTIS-2012SA032284

PATIENT
  Age: 41 Year
  Sex: Male

DRUGS (3)
  1. LANTUS [Suspect]
     Indication: DIABETES MELLITUS
     Dosage: DOSE:45 UNIT(S)
     Route: 058
  2. LANTUS [Suspect]
     Dosage: LANTUS SOLOSTAR USE BEGAN END OF 2011 DOSE:30 UNIT(S)
     Route: 058
     Dates: start: 20110101
  3. SOLOSTAR [Suspect]
     Indication: DIABETES MELLITUS
     Dates: start: 20110101

REACTIONS (3)
  - BLOOD GLUCOSE DECREASED [None]
  - LEG AMPUTATION [None]
  - AMPUTATION REVISION [None]
